FAERS Safety Report 6156708-3 (Version None)
Quarter: 2009Q2

REPORT INFORMATION
  Report Type: 
  Country: None (occurrence: None)
  Receive Date: 20090416
  Receipt Date: 20080605
  Transmission Date: 20091009
  Serious: Yes (Other)
  Sender: FDA-Public Use
  Company Number: JP-JNJFOC-20080602206

PATIENT
  Sex: Male
  Weight: 50 kg

DRUGS (6)
  1. ITRIZOLE [Suspect]
     Indication: ONYCHOMYCOSIS
     Route: 048
  2. LULLAN [Interacting]
     Route: 048
  3. LULLAN [Interacting]
     Route: 048
  4. LULLAN [Interacting]
     Indication: MENTALLY LATE DEVELOPER
     Route: 048
  5. DESYREL [Concomitant]
     Indication: MENTALLY LATE DEVELOPER
     Route: 048
  6. SLO-BID [Concomitant]
     Indication: ASTHMA
     Route: 048

REACTIONS (2)
  - DRUG INTERACTION [None]
  - RHABDOMYOLYSIS [None]
